FAERS Safety Report 7368709-8 (Version None)
Quarter: 2011Q1

REPORT INFORMATION
  Report Type: 
  Country: None (occurrence: None)
  Receive Date: 20110323
  Receipt Date: 20100805
  Transmission Date: 20110831
  Serious: Yes (Other)
  Sender: FDA-Public Use
  Company Number: US-BAYER-201023778NA

PATIENT
  Sex: Female
  Weight: 72.562 kg

DRUGS (7)
  1. YASMIN [Suspect]
     Indication: DYSMENORRHOEA
  2. UNKNOWN DRUG [Concomitant]
     Indication: PAIN
     Dosage: UNK
     Dates: start: 20091124
  3. MOTRIN [Concomitant]
  4. ULTRAM [Concomitant]
  5. YASMIN [Suspect]
     Indication: CONTRACEPTION
     Dosage: UNK
     Route: 048
     Dates: start: 20030401, end: 20080101
  6. OCELLA [Suspect]
     Indication: CONTRACEPTION
     Dosage: UNK
     Route: 048
     Dates: start: 20090913, end: 20091217
  7. OCELLA [Suspect]
     Indication: DYSMENORRHOEA

REACTIONS (1)
  - DEEP VEIN THROMBOSIS [None]
